FAERS Safety Report 4989867-6 (Version None)
Quarter: 2006Q2

REPORT INFORMATION
  Report Type: 
  Country: None (occurrence: None)
  Receive Date: 20060428
  Receipt Date: 20060419
  Transmission Date: 20061013
  Serious: Yes (Other)
  Sender: FDA-Public Use
  Company Number: HQWYE886220APR06

PATIENT
  Age: 70 Year
  Sex: Male

DRUGS (1)
  1. CORDARONE [Suspect]
     Dosage: 1-200 MG INTERMITTTENTLY
     Dates: start: 19990101

REACTIONS (3)
  - COGWHEEL RIGIDITY [None]
  - DYSGRAPHIA [None]
  - PARKINSON'S DISEASE [None]
